FAERS Safety Report 6631688-2 (Version None)
Quarter: 2010Q1

REPORT INFORMATION
  Report Type: 
  Country: None (occurrence: None)
  Receive Date: 20100312
  Receipt Date: 20100302
  Transmission Date: 20100710
  Serious: Yes (Hospitalization)
  Sender: FDA-Public Use
  Company Number: IN-PFIZER INC-2010027005

PATIENT
  Age: 64 Year
  Sex: Female

DRUGS (2)
  1. SOLU-MEDROL [Suspect]
     Indication: ASTHMA
     Dosage: 125 MG, AS NEEDED
     Route: 042
     Dates: start: 20100228, end: 20100228
  2. DERIPHYLLIN [Concomitant]
     Dosage: UNK
     Route: 051

REACTIONS (4)
  - DIZZINESS [None]
  - DYSPNOEA [None]
  - INSOMNIA [None]
  - PRODUCT DEPOSIT [None]
